FAERS Safety Report 18687893 (Version 1)
Quarter: 2020Q4

REPORT INFORMATION
  Report Type: Spontaneous
  Country: US (occurrence: US)
  Receive Date: 20201230
  Receipt Date: 20201230
  Transmission Date: 20210114
  Serious: Yes (Death)
  Sender: FDA-Public Use
  Company Number: None

PATIENT
  Age: 74 Year
  Sex: Female
  Weight: 116.58 kg

DRUGS (2)
  1. PROPOFOL. [Suspect]
     Active Substance: PROPOFOL
  2. BD ALARIS PUMP INFUSION SET [Suspect]
     Active Substance: DEVICE

REACTIONS (9)
  - Product administration error [None]
  - Product preparation error [None]
  - Creatinine renal clearance decreased [None]
  - Pulseless electrical activity [None]
  - Transfusion [None]
  - Device issue [None]
  - Fluid overload [None]
  - Cardio-respiratory arrest [None]
  - Product leakage [None]

NARRATIVE: CASE EVENT DATE: 20201224
